FAERS Safety Report 5899498-1 (Version None)
Quarter: 2008Q3

REPORT INFORMATION
  Report Type: 
  Country: None (occurrence: None)
  Receive Date: 20080925
  Receipt Date: 20080925
  Transmission Date: 20090109
  Serious: No
  Sender: FDA-Public Use
  Company Number: None

PATIENT
  Age: 44 Year
  Sex: Male
  Weight: 68.4932 kg

DRUGS (1)
  1. XANAX [Suspect]
     Dosage: 1 PO TID
     Route: 048
     Dates: start: 20071113

REACTIONS (1)
  - PHARMACEUTICAL PRODUCT COMPLAINT [None]
